APPROVED DRUG PRODUCT: BUPRENORPHINE
Active Ingredient: BUPRENORPHINE
Strength: 15MCG/HR
Dosage Form/Route: FILM, EXTENDED RELEASE;TRANSDERMAL
Application: A211586 | Product #004 | TE Code: AB
Applicant: AMNEAL PHARMACEUTICALS LLC
Approved: Apr 14, 2020 | RLD: No | RS: No | Type: RX